FAERS Safety Report 6824756-3 (Version None)
Quarter: 2010Q3

REPORT INFORMATION
  Report Type: 
  Country: None (occurrence: None)
  Receive Date: 20100708
  Receipt Date: 20061116
  Transmission Date: 20110219
  Serious: No
  Sender: FDA-Public Use
  Company Number: US-PFIZER INC-2006143867

PATIENT
  Sex: Female
  Weight: 58.97 kg

DRUGS (13)
  1. CHANTIX [Suspect]
     Indication: SMOKING CESSATION THERAPY
     Dates: start: 20061106
  2. STRATTERA [Concomitant]
  3. GABAPENTIN [Concomitant]
  4. OXYCODONE HCL [Concomitant]
     Indication: FIBROCYSTIC BREAST DISEASE
  5. MELATONIN [Concomitant]
  6. HERBAL PREPARATION [Concomitant]
  7. VITAMIN E [Concomitant]
  8. VITAMIN A [Concomitant]
  9. VITAMIN B [Concomitant]
  10. VITAMIN D [Concomitant]
  11. DIPHENHYDRAMINE [Concomitant]
     Indication: MULTIPLE ALLERGIES
  12. VALIUM [Concomitant]
  13. MUSCLE RELAXANTS [Concomitant]

REACTIONS (9)
  - ABNORMAL DREAMS [None]
  - BLADDER DISORDER [None]
  - DISCOMFORT [None]
  - MALAISE [None]
  - MIDDLE INSOMNIA [None]
  - NAUSEA [None]
  - NEPHROLITHIASIS [None]
  - PAIN [None]
  - PARAESTHESIA [None]
